FAERS Safety Report 15432470 (Version 2)
Quarter: 2018Q4

REPORT INFORMATION
  Report Type: Report from Study
  Country: None (occurrence: US)
  Receive Date: 20180927
  Receipt Date: 20181026
  Transmission Date: 20190204
  Serious: Yes (Other)
  Sender: FDA-Public Use
  Company Number: US-ABBVIE-18K-163-2435048-00

PATIENT
  Age: 73 Year
  Sex: Female
  Weight: 54.48 kg

DRUGS (13)
  1. PREDNISONE. [Suspect]
     Active Substance: PREDNISONE
     Indication: PRODUCT USED FOR UNKNOWN INDICATION
     Route: 065
  2. VITAMIN D3 [Concomitant]
     Active Substance: CHOLECALCIFEROL
     Indication: PRODUCT USED FOR UNKNOWN INDICATION
     Dosage: REFILLS: 6.
     Route: 048
  3. LISINOPRIL. [Concomitant]
     Active Substance: LISINOPRIL
     Indication: PRODUCT USED FOR UNKNOWN INDICATION
     Dosage: REFILLS: 6.
     Route: 048
  4. HUMIRA [Suspect]
     Active Substance: ADALIMUMAB
     Indication: RHEUMATOID ARTHRITIS
     Route: 058
     Dates: start: 20180716
  5. TYLENOL [Concomitant]
     Active Substance: ACETAMINOPHEN
     Indication: PRODUCT USED FOR UNKNOWN INDICATION
     Route: 048
  6. PREMARIN [Concomitant]
     Active Substance: ESTROGENS, CONJUGATED
     Indication: PRODUCT USED FOR UNKNOWN INDICATION
     Dosage: TWICE WEEKLY AT BEDTIME.
     Route: 061
  7. PREDNISONE. [Suspect]
     Active Substance: PREDNISONE
     Dosage: DOSE WEANED
     Route: 065
  8. ALENDRONATE [Concomitant]
     Active Substance: ALENDRONATE SODIUM
     Indication: PRODUCT USED FOR UNKNOWN INDICATION
     Dosage: PLAIN WATER, AT LEAST 30 MINUTES BEFORE FIRST FOOD, BEVERAGE, OR MEDICATION OF THE DAY.
     Route: 048
  9. CLARITIN [Concomitant]
     Active Substance: LORATADINE
     Indication: PRODUCT USED FOR UNKNOWN INDICATION
     Dosage: REFILLS: 0 .
     Route: 048
  10. SELENIUM SULFIDE. [Concomitant]
     Active Substance: SELENIUM SULFIDE
     Indication: PRODUCT USED FOR UNKNOWN INDICATION
     Dosage: APPLY TOPICALLY TO THE AFFECTED AREA A EVERY WEEK. REFILLS: 0.
     Route: 061
  11. SHINGRIX [Concomitant]
     Active Substance: RECOMBINANT VARICELLA ZOSTER VIRUS (VZV) GLYCOPROTEIN E
     Indication: PRODUCT USED FOR UNKNOWN INDICATION
     Dosage: 0 .5 MILLILITER INTRAMUSCULAR ONE TIME ONLY. REPEAT DOSE IN 2 TO 6 MONTHS. REFILLS: 1.
  12. FLUTICASONE. [Concomitant]
     Active Substance: FLUTICASONE
     Indication: PRODUCT USED FOR UNKNOWN INDICATION
     Dosage: 50 MCG/INH NASAL SPRAY 1 SPRAY(S) IN NOSTRIL TWO TIMES A DAY.
  13. METHYLPREDNISOLONE. [Concomitant]
     Active Substance: METHYLPREDNISOLONE
     Indication: PRODUCT USED FOR UNKNOWN INDICATION
     Dosage: REFILLS: 2.
     Route: 048

REACTIONS (19)
  - Injection site pain [Recovered/Resolved]
  - Skin abrasion [Unknown]
  - Gait disturbance [Unknown]
  - Peripheral swelling [Not Recovered/Not Resolved]
  - Peripheral swelling [Unknown]
  - Mastoid effusion [Unknown]
  - Soft tissue swelling [Unknown]
  - Injection site nerve damage [Recovered/Resolved]
  - Head injury [Unknown]
  - Subdural haematoma [Unknown]
  - Femur fracture [Unknown]
  - Hypertension [Unknown]
  - Patella fracture [Unknown]
  - Fall [Recovering/Resolving]
  - Blood chloride increased [Unknown]
  - Traumatic intracranial haemorrhage [Unknown]
  - Platelet count increased [Unknown]
  - Joint swelling [Unknown]
  - Foot fracture [Unknown]

NARRATIVE: CASE EVENT DATE: 2018
